FAERS Safety Report 8207775-4 (Version None)
Quarter: 2012Q1

REPORT INFORMATION
  Report Type: 
  Country: None (occurrence: None)
  Receive Date: 20120313
  Receipt Date: 20120313
  Transmission Date: 20120608
  Serious: No
  Sender: FDA-Public Use
  Company Number: None

PATIENT
  Sex: Female

DRUGS (1)
  1. GILENYA [Suspect]
     Indication: UNEVALUABLE EVENT
     Dosage: .5 MG PO TAKE 1 CAPSULE BY MOUTH ONCE A DAY
     Route: 048

REACTIONS (2)
  - ABNORMAL DREAMS [None]
  - NIGHTMARE [None]
